FAERS Safety Report 5253442-9 (Version None)
Quarter: 2007Q1

REPORT INFORMATION
  Report Type: 
  Country: None (occurrence: None)
  Receive Date: 20070301
  Receipt Date: 20070215
  Transmission Date: 20070707
  Serious: Yes (Other)
  Sender: FDA-Public Use
  Company Number: CS-SHR-CS-2007-005434

PATIENT
  Age: 64 Year
  Sex: Female

DRUGS (1)
  1. REFLUDAN [Suspect]

REACTIONS (3)
  - GENERAL PHYSICAL HEALTH DETERIORATION [None]
  - OEDEMA PERIPHERAL [None]
  - PLATELET COUNT DECREASED [None]
